FAERS Safety Report 9477808 (Version 17)
Quarter: 2015Q1

REPORT INFORMATION
  Report Type: Report from Study
  Country: JP (occurrence: JP)
  Receive Date: 20130827
  Receipt Date: 20150106
  Transmission Date: 20150721
  Serious: Yes (Hospitalization)
  Sender: FDA-Public Use
  Company Number: JP-BRISTOL-MYERS SQUIBB COMPANY-19203330

PATIENT
  Age: 64 Year
  Sex: Female
  Weight: 40 kg

DRUGS (10)
  1. LEVOTHYROXINE SODIUM. [Concomitant]
     Active Substance: LEVOTHYROXINE SODIUM
  2. CYANOCOBALAMIN. [Concomitant]
     Active Substance: CYANOCOBALAMIN
  3. SODIUM ALGINATE [Concomitant]
     Active Substance: SODIUM ALGINATE
  4. MULTI VITAMIN [Concomitant]
     Active Substance: VITAMINS
     Dosage: UNK
     Dates: start: 20121022
  5. SOLITA-T [Concomitant]
     Dosage: UNK
     Dates: start: 20130724, end: 20130806
  6. PREDNISOLONE. [Concomitant]
     Active Substance: PREDNISOLONE
  7. LIOTHYRONINE SODIUM. [Concomitant]
     Active Substance: LIOTHYRONINE SODIUM
  8. IPILIMUMAB [Suspect]
     Active Substance: IPILIMUMAB
     Indication: GASTRIC CANCER
     Dosage: 10 MG/KG, UNK
     Route: 042
     Dates: start: 20130318, end: 20130520
  9. PILOCARPINE [Concomitant]
     Active Substance: PILOCARPINE
  10. METHYLPREDNISOLONE SODIUM SUCCINATE. [Concomitant]
     Active Substance: METHYLPREDNISOLONE SODIUM SUCCINATE
     Dosage: UNK

REACTIONS (3)
  - Hypothyroidism [Not Recovered/Not Resolved]
  - Decreased appetite [Recovered/Resolved]
  - Liver disorder [Recovered/Resolved]

NARRATIVE: CASE EVENT DATE: 20130812
